FAERS Safety Report 7747482-5 (Version None)
Quarter: 2011Q3

REPORT INFORMATION
  Report Type: 
  Country: None (occurrence: None)
  Receive Date: 20110913
  Receipt Date: 20110906
  Transmission Date: 20111222
  Serious: Yes (Other)
  Sender: FDA-Public Use
  Company Number: US-PFIZER INC-2011197848

PATIENT
  Sex: Male

DRUGS (31)
  1. MIRTAZAPINE [Suspect]
  2. DEPAKOTE [Suspect]
     Indication: HEADACHE
  3. LAMICTAL [Suspect]
  4. KLONOPIN [Suspect]
  5. GEODON [Suspect]
  6. ELAVIL [Suspect]
  7. CARBAMAZEPINE [Suspect]
  8. EFFEXOR [Suspect]
     Dosage: 37.5 MG, UNK
  9. ZOMIG [Suspect]
  10. RISPERDAL [Suspect]
  11. SEROQUEL [Suspect]
  12. VALIUM [Suspect]
     Indication: PAIN
  13. CYMBALTA [Suspect]
  14. PAMELOR [Suspect]
  15. SKELAXIN [Suspect]
  16. EFFEXOR XR [Suspect]
  17. SOMA [Suspect]
  18. LITHIUM [Suspect]
  19. ZYPREXA [Suspect]
  20. BUSPAR [Suspect]
  21. TRAZODONE HCL [Suspect]
  22. PAXIL [Suspect]
  23. ZOLOFT [Suspect]
  24. TEGRETOL [Suspect]
  25. WELLBUTRIN [Suspect]
  26. VALIUM [Suspect]
     Indication: HYPOTONIA
  27. LEXAPRO [Suspect]
  28. VALIUM [Suspect]
     Indication: ANXIETY
  29. RITALIN [Suspect]
     Indication: HEADACHE
  30. CELEBREX [Suspect]
  31. IMITREX [Suspect]

REACTIONS (25)
  - ANGER [None]
  - INSOMNIA [None]
  - DEPENDENCE [None]
  - SUICIDAL IDEATION [None]
  - GASTRIC ULCER [None]
  - DRUG INEFFECTIVE [None]
  - MEMORY IMPAIRMENT [None]
  - RASH [None]
  - INFLUENZA LIKE ILLNESS [None]
  - RAPID EYE MOVEMENTS SLEEP ABNORMAL [None]
  - FATIGUE [None]
  - MOOD SWINGS [None]
  - DRUG EFFECT INCREASED [None]
  - WEIGHT INCREASED [None]
  - RECTAL HAEMORRHAGE [None]
  - DISTURBANCE IN ATTENTION [None]
  - ABNORMAL BEHAVIOUR [None]
  - EAR DISORDER [None]
  - ERECTION INCREASED [None]
  - DEAFNESS [None]
  - MOOD ALTERED [None]
  - AGGRESSION [None]
  - MUSCLE SPASMS [None]
  - BREAST ENLARGEMENT [None]
  - CONSTIPATION [None]
